FAERS Safety Report 20684865 (Version 1)
Quarter: 2022Q2

REPORT INFORMATION
  Report Type: Spontaneous
  Country: US (occurrence: None)
  Receive Date: 20220405
  Receipt Date: 20220405
  Transmission Date: 20220721
  Serious: Yes (Hospitalization)
  Sender: FDA-Public Use
  Company Number: None

PATIENT
  Age: 64 Year
  Sex: Male

DRUGS (1)
  1. CAPECITABINE [Suspect]
     Active Substance: CAPECITABINE
     Indication: Product used for unknown indication
     Dosage: 2500MG BID ORAL?
     Route: 048

REACTIONS (7)
  - Weight decreased [None]
  - Diarrhoea [None]
  - Feeding disorder [None]
  - Gait inability [None]
  - Vomiting [None]
  - Dysphonia [None]
  - Condition aggravated [None]

NARRATIVE: CASE EVENT DATE: 20220329
